FAERS Safety Report 5733802-X (Version None)
Quarter: 2008Q2

REPORT INFORMATION
  Report Type: 
  Country: None (occurrence: None)
  Receive Date: 20080509
  Receipt Date: 20080430
  Transmission Date: 20081010
  Serious: Yes (Congenital Anomaly)
  Sender: FDA-Public Use
  Company Number: GB-ABBOTT-07P-167-0415921-00

PATIENT
  Sex: Male

DRUGS (1)
  1. VALPROIC ACID [Suspect]
     Indication: DRUG EXPOSURE DURING PREGNANCY
     Route: 064

REACTIONS (21)
  - AGGRESSION [None]
  - CAFE AU LAIT SPOTS [None]
  - CONGENITAL CUTIS LAXA [None]
  - CONGENITAL NOSE MALFORMATION [None]
  - COORDINATION ABNORMAL [None]
  - DEPENDENT PERSONALITY DISORDER [None]
  - DRUG EXPOSURE DURING PREGNANCY [None]
  - DYSMORPHISM [None]
  - ENURESIS [None]
  - FOETAL ANTICONVULSANT SYNDROME [None]
  - FOOT DEFORMITY [None]
  - HYPOTONIA [None]
  - ILLITERACY [None]
  - LEARNING DISABILITY [None]
  - LIMB MALFORMATION [None]
  - LIP DISORDER [None]
  - MEMORY IMPAIRMENT [None]
  - MENTAL RETARDATION [None]
  - SKULL MALFORMATION [None]
  - SPEECH DISORDER [None]
  - SPEECH DISORDER DEVELOPMENTAL [None]
